FAERS Safety Report 25806405 (Version 2)
Quarter: 2025Q4

REPORT INFORMATION
  Report Type: Spontaneous
  Country: GB (occurrence: GB)
  Receive Date: 20250916
  Receipt Date: 20251003
  Transmission Date: 20260117
  Serious: Yes (Other)
  Sender: MICRO LABS LIMITED
  Company Number: None

PATIENT
  Age: 65 Year
  Sex: Female
  Weight: 69 kg

DRUGS (2)
  1. AMOXICILLIN [Suspect]
     Active Substance: AMOXICILLIN
     Indication: Product used for unknown indication
  2. PENICILLIN [Concomitant]
     Active Substance: PENICILLIN
     Indication: Infection

REACTIONS (1)
  - Oral mucosal blistering [Recovered/Resolved]
